FAERS Safety Report 21657616 (Version 1)
Quarter: 2022Q4

REPORT INFORMATION
  Report Type: Spontaneous
  Country: US (occurrence: None)
  Receive Date: 20221128
  Receipt Date: 20221128
  Transmission Date: 20230113
  Serious: No
  Sender: FDA-Public Use
  Company Number: None

PATIENT
  Age: 25 Year
  Sex: Female
  Weight: 51.75 kg

DRUGS (1)
  1. AMPHETAMINE [Suspect]
     Active Substance: AMPHETAMINE
     Indication: Attention deficit hyperactivity disorder
     Dosage: OTHER QUANTITY : 28 CAPSULE(S);?
     Route: 048
     Dates: start: 20221112

REACTIONS (8)
  - Headache [None]
  - Dizziness [None]
  - Nausea [None]
  - Palpitations [None]
  - Product quality issue [None]
  - Feeling abnormal [None]
  - Manufacturing issue [None]
  - Disturbance in attention [None]

NARRATIVE: CASE EVENT DATE: 20221114
